FAERS Safety Report 4834970-4 (Version None)
Quarter: 2005Q4

REPORT INFORMATION
  Report Type: 
  Country: None (occurrence: None)
  Receive Date: 20051114
  Receipt Date: 20051103
  Transmission Date: 20060501
  Serious: Yes (Other)
  Sender: FDA-Public Use
  Company Number: 163-20785-05110045

PATIENT
  Age: 43 Year
  Sex: Female

DRUGS (1)
  1. THALOMID [Suspect]
     Indication: MULTIPLE MYELOMA
     Dosage: 200 MG, DAILY, ORAL
     Route: 048
     Dates: start: 20010728, end: 20051101

REACTIONS (3)
  - BLOOD IMMUNOGLOBULIN G INCREASED [None]
  - LIGHT CHAIN ANALYSIS ABNORMAL [None]
  - URINE HUMAN CHORIONIC GONADOTROPIN POSITIVE [None]
